FAERS Safety Report 8394165-7 (Version None)
Quarter: 2012Q2

REPORT INFORMATION
  Report Type: 
  Country: None (occurrence: None)
  Receive Date: 20120530
  Receipt Date: 20120521
  Transmission Date: 20120825
  Serious: Yes (Disabling)
  Sender: FDA-Public Use
  Company Number: FR-B.I. PHARMACEUTICALS,INC./RIDGEFIELD-2012-FF-00359FF

PATIENT
  Sex: Male
  Weight: 92 kg

DRUGS (2)
  1. CRESTOR [Concomitant]
  2. PRADAXA [Suspect]
     Indication: ATRIAL FIBRILLATION
     Dosage: 220 MG
     Route: 048

REACTIONS (1)
  - ISCHAEMIC STROKE [None]
